FAERS Safety Report 6197131-5 (Version None)
Quarter: 2009Q2

REPORT INFORMATION
  Report Type: 
  Country: None (occurrence: None)
  Receive Date: 20090518
  Receipt Date: 20090518
  Transmission Date: 20091009
  Serious: Yes (Other)
  Sender: FDA-Public Use
  Company Number: None

PATIENT
  Age: 62 Year
  Sex: Male
  Weight: 90.7194 kg

DRUGS (7)
  1. LEVAQUIN [Suspect]
     Indication: LOWER RESPIRATORY TRACT INFECTION
     Dosage: 750 MG ONE PER DAY PO
     Route: 048
     Dates: start: 20090325, end: 20090331
  2. LEVAQUIN [Suspect]
     Indication: UPPER RESPIRATORY TRACT INFECTION
     Dosage: 750 MG ONE PER DAY PO
     Route: 048
     Dates: start: 20090325, end: 20090331
  3. AGMENTIN [Concomitant]
  4. PREDNISONE [Concomitant]
  5. CEFDINIR [Concomitant]
  6. AMPHOTERICIN NASAL SPRAY [Concomitant]
  7. CHOLESTYRAMINE RESIN POWDER [Concomitant]

REACTIONS (1)
  - TENDONITIS [None]
